FAERS Safety Report 12681294 (Version 6)
Quarter: 2020Q1

REPORT INFORMATION
  Report Type: Spontaneous
  Country: US (occurrence: US)
  Receive Date: 20160824
  Receipt Date: 20200304
  Transmission Date: 20200409
  Serious: No
  Sender: FDA-Public Use
  Company Number: US-009507513-1608USA008197

PATIENT
  Age: 59 Year
  Sex: Male

DRUGS (6)
  1. SPIRIVA [Concomitant]
     Active Substance: TIOTROPIUM BROMIDE MONOHYDRATE
     Dosage: UNK
     Route: 055
  2. PROVENTIL [Suspect]
     Active Substance: ALBUTEROL
     Indication: PROPHYLAXIS AGAINST BRONCHOSPASM
     Dosage: 90 MICROGRAM, TWICE A DAY OR AS MUCH AS HE NEEDS, TAKES ABOUT 2 PUFFS
     Route: 055
     Dates: start: 201311
  3. PROVENTIL [Suspect]
     Active Substance: ALBUTEROL
     Dosage: UNK
  4. PROVENTIL [Suspect]
     Active Substance: ALBUTEROL
     Dosage: 1-2 PUFFS AS NEEDED
  5. PROVENTIL [Suspect]
     Active Substance: ALBUTEROL
     Indication: BRONCHOSPASM
     Dosage: 90 MICROGRAM
     Route: 055
     Dates: start: 201608, end: 201608
  6. PROVENTIL [Suspect]
     Active Substance: ALBUTEROL
     Indication: CHRONIC OBSTRUCTIVE PULMONARY DISEASE
     Dosage: 90 MICROGRAM
     Route: 055

REACTIONS (11)
  - Cough [Recovering/Resolving]
  - Chest pain [Not Recovered/Not Resolved]
  - Product odour abnormal [Unknown]
  - Product colour issue [Unknown]
  - Breath odour [Unknown]
  - Product quality issue [Unknown]
  - Product dose omission [Unknown]
  - Product taste abnormal [Unknown]
  - Product use in unapproved indication [Unknown]
  - Burning sensation [Unknown]
  - Burning sensation [Not Recovered/Not Resolved]

NARRATIVE: CASE EVENT DATE: 2013
